FAERS Safety Report 4950673-X (Version None)
Quarter: 2006Q1

REPORT INFORMATION
  Report Type: 
  Country: None (occurrence: None)
  Receive Date: 20060321
  Receipt Date: 20060321
  Transmission Date: 20060701
  Serious: Yes (Other)
  Sender: FDA-Public Use
  Company Number: None

PATIENT
  Age: 54 Year
  Sex: Male
  Weight: 106.1 kg

DRUGS (9)
  1. RIBAVIRIN [Suspect]
  2. LISINOPRIL [Concomitant]
  3. OXYCODONE HCL [Concomitant]
  4. ALBUTEROL / IPRATROP [Concomitant]
  5. CITALOPRAM HYDROBROMIDE [Concomitant]
  6. TRAZODONE HCL [Concomitant]
  7. CLONAZEPAM [Concomitant]
  8. MELOXICAM [Concomitant]
  9. RANITIDINE HCL [Concomitant]

REACTIONS (1)
  - ANAEMIA [None]
